FAERS Safety Report 6635470-1 (Version None)
Quarter: 2010Q1

REPORT INFORMATION
  Report Type: 
  Country: None (occurrence: None)
  Receive Date: 20100315
  Receipt Date: 20090817
  Transmission Date: 20100710
  Serious: No
  Sender: FDA-Public Use
  Company Number: US-ABBOTT-09P-163-0592503-00

PATIENT
  Sex: Male
  Weight: 78.088 kg

DRUGS (2)
  1. DEPAKOTE [Suspect]
     Indication: SCHIZOPHRENIA
     Route: 048
     Dates: start: 20090701
  2. RISPERDAL [Concomitant]
     Indication: DRUG USE FOR UNKNOWN INDICATION

REACTIONS (1)
  - NASAL CONGESTION [None]
